FAERS Safety Report 4413834-4 (Version None)
Quarter: 2004Q3

REPORT INFORMATION
  Report Type: 
  Country: None (occurrence: None)
  Receive Date: 20040728
  Receipt Date: 20040713
  Transmission Date: 20050211
  Serious: Yes (Life-Threatening)
  Sender: FDA-Public Use
  Company Number: 2004IC000375

PATIENT

DRUGS (2)
  1. 5-FLUOROURACIL (FLUOROURIACAL) [Suspect]
     Indication: OESOPHAGEAL CARCINOMA
     Dosage: INTRAVENOUS
     Dates: start: 20040708, end: 20040712
  2. AQUPLA [Concomitant]

REACTIONS (2)
  - ARRHYTHMIA [None]
  - RESPIRATORY ARREST [None]
